FAERS Safety Report 6530476-5 (Version None)
Quarter: 2010Q1

REPORT INFORMATION
  Report Type: 
  Country: None (occurrence: None)
  Receive Date: 20100106
  Receipt Date: 20100106
  Transmission Date: 20100710
  Serious: Yes (Life-Threatening, Hospitalization, Disabling, Other)
  Sender: FDA-Public Use
  Company Number: None

PATIENT
  Age: 45 Year
  Sex: Male
  Weight: 83.9154 kg

DRUGS (4)
  1. BRONKAID CAPLETS/BAYER HEALTH CARE [Suspect]
     Indication: ASTHMA
     Dosage: ONE CAPLET EVERY 4-6 HRS OR AS NEEDED
  2. BRONKAID CAPLETS/BAYER HEALTH CARE [Suspect]
     Indication: BRONCHITIS
     Dosage: ONE CAPLET EVERY 4-6 HRS OR AS NEEDED
  3. EPHEDRINE SULFATE 25MG/GUIFENESIN 400MG [Suspect]
     Dosage: AS RECOMMENDED
  4. GUIFENESIN [Suspect]
     Dosage: 400MG

REACTIONS (10)
  - ANXIETY [None]
  - BLOOD PRESSURE ABNORMAL [None]
  - CARDIAC DISORDER [None]
  - CONVULSION [None]
  - DIABETES MELLITUS [None]
  - DRUG DEPENDENCE [None]
  - MALAISE [None]
  - PANIC ATTACK [None]
  - PSYCHOTIC DISORDER [None]
  - UNEVALUABLE EVENT [None]
